FAERS Safety Report 9794717 (Version 1)
Quarter: 2014Q1

REPORT INFORMATION
  Report Type: Spontaneous
  Country: NO (occurrence: NO)
  Receive Date: 20140102
  Receipt Date: 20140102
  Transmission Date: 20141002
  Serious: Yes (Disabling, Other)
  Sender: FDA-Public Use
  Company Number: NO-RB-062003-13

PATIENT
  Age: 32 Year
  Sex: Male
  Weight: 82 kg

DRUGS (1)
  1. SUBUTEX [Suspect]
     Indication: DRUG WITHDRAWAL MAINTENANCE THERAPY
     Dosage: FROM 20 TO 0.5 MG
     Route: 065
     Dates: start: 20070713, end: 20131218

REACTIONS (16)
  - Suicidal ideation [Unknown]
  - Motor dysfunction [Unknown]
  - Asthma [Unknown]
  - Libido decreased [Unknown]
  - Feeling abnormal [Unknown]
  - Skin odour abnormal [Recovered/Resolved]
  - Vomiting [Unknown]
  - Nightmare [Unknown]
  - Dry mouth [Unknown]
  - Flatulence [Unknown]
  - Gastric disorder [Unknown]
  - Insomnia [Unknown]
  - Anxiety [Unknown]
  - Affect lability [Unknown]
  - Depression [Unknown]
  - Quality of life decreased [Unknown]
